FAERS Safety Report 9015692 (Version 1)
Quarter: 2013Q1

REPORT INFORMATION
  Report Type: Spontaneous
  Country: ES (occurrence: None)
  Receive Date: 20130102
  Receipt Date: 20130102
  Transmission Date: 20140127
  Serious: Yes (Other)
  Sender: FDA-Public Use
  Company Number: DSA_61626_2012

PATIENT
  Age: 77 Year
  Sex: Female

DRUGS (7)
  1. FLAGYL /00012501/ (FLAGYL (METRONIDAZOLE)) (NOT SPECIFIED) [Suspect]
     Indication: DIVERTICULITIS
     Route: 042
     Dates: start: 20121128, end: 20121130
  2. LEVOFLOXACINO [Concomitant]
  3. PAROXETINA MYLAN GENERICS [Concomitant]
  4. NOLOTIL /06276702/ [Concomitant]
  5. SIMVASTATINA [Concomitant]
  6. ENALAPRIL+HCTZ [Concomitant]
  7. INVANZ [Concomitant]

REACTIONS (4)
  - Feeling hot [None]
  - Choking sensation [None]
  - Pallor [None]
  - Dizziness [None]
